FAERS Safety Report 10547329 (Version 4)
Quarter: 2015Q2

REPORT INFORMATION
  Report Type: Spontaneous
  Country: DE (occurrence: DE)
  Receive Date: 20141028
  Receipt Date: 20150407
  Transmission Date: 20150821
  Serious: Yes (Other)
  Sender: FDA-Public Use
  Company Number: DE-THROMBOGENICS NV-SPO-2014-1133

PATIENT
  Age: 50 Year
  Sex: Female

DRUGS (1)
  1. JETREA [Suspect]
     Active Substance: OCRIPLASMIN
     Indication: VITREOUS ADHESIONS
     Dosage: 0.125 MG, ONE TIME DOSE
     Route: 031
     Dates: start: 20131113, end: 20131113

REACTIONS (7)
  - Tunnel vision [Unknown]
  - Optical coherence tomography abnormal [Unknown]
  - Visual field defect [Unknown]
  - Night blindness [Unknown]
  - Visual acuity reduced [Unknown]
  - Retinogram abnormal [Unknown]
  - Night blindness [Unknown]

NARRATIVE: CASE EVENT DATE: 20131114
